FAERS Safety Report 19370189 (Version 3)
Quarter: 2021Q2

REPORT INFORMATION
  Report Type: Spontaneous
  Country: US (occurrence: US)
  Receive Date: 20210604
  Receipt Date: 20210629
  Transmission Date: 20210717
  Serious: Yes (Other)
  Sender: FDA-Public Use
  Company Number: US-SA-2021SA184937

PATIENT
  Sex: Male

DRUGS (1)
  1. DUPIXENT [Suspect]
     Active Substance: DUPILUMAB
     Indication: DERMATITIS ATOPIC
     Dosage: 300 MG
     Route: 058
     Dates: start: 20190816

REACTIONS (5)
  - Amnesia [Unknown]
  - Memory impairment [Unknown]
  - Condition aggravated [Unknown]
  - Anosmia [Unknown]
  - Dementia [Unknown]

NARRATIVE: CASE EVENT DATE: 201908
